FAERS Safety Report 22001770 (Version 4)
Quarter: 2023Q2

REPORT INFORMATION
  Report Type: Spontaneous
  Country: US (occurrence: US)
  Receive Date: 20230216
  Receipt Date: 20230503
  Transmission Date: 20230721
  Serious: Yes (Other)
  Sender: FDA-Public Use
  Company Number: US-JNJFOC-20230218938

PATIENT
  Age: 6 Decade
  Sex: Female

DRUGS (5)
  1. TOPAMAX [Suspect]
     Active Substance: TOPIRAMATE
     Indication: Bipolar disorder
     Route: 048
     Dates: start: 2006
  2. TOPAMAX [Suspect]
     Active Substance: TOPIRAMATE
     Route: 048
     Dates: start: 20080811, end: 20090309
  3. DEPAKOTE [Concomitant]
     Active Substance: DIVALPROEX SODIUM
     Indication: Product used for unknown indication
     Route: 065
  4. WELLBUTRIN [Concomitant]
     Active Substance: BUPROPION HYDROCHLORIDE
     Indication: Depression
     Dosage: THERAPY STARTED BEFORE 29/JAN/2007 AND THERAPY ENDED ON 06/APR/2009
     Route: 048
  5. KLONOPIN [Concomitant]
     Active Substance: CLONAZEPAM
     Indication: Anxiety
     Dosage: THERAPY STARTED BEFORE 29/JAN/2007 AND CONTINUOUS THROUGH 26/JUL/2013
     Route: 048

REACTIONS (6)
  - Deafness unilateral [Not Recovered/Not Resolved]
  - Tinnitus [Unknown]
  - Depression [Unknown]
  - Off label use [Unknown]
  - Insomnia [Unknown]
  - Fatigue [Unknown]

NARRATIVE: CASE EVENT DATE: 20060101
